FAERS Safety Report 7398313-7 (Version None)
Quarter: 2011Q2

REPORT INFORMATION
  Report Type: 
  Country: None (occurrence: None)
  Receive Date: 20110406
  Receipt Date: 20110325
  Transmission Date: 20111010
  Serious: Yes (Death)
  Sender: FDA-Public Use
  Company Number: US-ELI_LILLY_AND_COMPANY-US201103002038

PATIENT
  Sex: Female
  Weight: 48.98 kg

DRUGS (7)
  1. ATENOLOL [Concomitant]
  2. ENALAPRIL MALEATE [Concomitant]
  3. PLAVIX [Concomitant]
  4. CORZIDE [Concomitant]
  5. FORTEO [Suspect]
  6. CLONIDINE [Concomitant]
  7. LASIX [Concomitant]

REACTIONS (1)
  - ARTERIOSCLEROSIS [None]
